FAERS Safety Report 20633714 (Version 1)
Quarter: 2022Q1

REPORT INFORMATION
  Report Type: Spontaneous
  Country: CA (occurrence: CA)
  Receive Date: 20220324
  Receipt Date: 20220324
  Transmission Date: 20220424
  Serious: Yes (Other)
  Sender: FDA-Public Use
  Company Number: CA-AstraZeneca-2020SF02447

PATIENT
  Age: 55 Year
  Sex: Male

DRUGS (15)
  1. OMNARIS [Suspect]
     Active Substance: CICLESONIDE
     Indication: Respiratory disorder
     Route: 055
  2. SYMBICORT [Suspect]
     Active Substance: BUDESONIDE\FORMOTEROL FUMARATE DIHYDRATE
     Indication: Respiratory disorder
     Dosage: 2 PUFFS, QID
     Route: 055
  3. ADVAIR HFA [Suspect]
     Active Substance: FLUTICASONE PROPIONATE\SALMETEROL XINAFOATE
     Indication: Asthma
     Dosage: 2 PUFFS, BID, 250 UG
     Route: 065
  4. MEPOLIZUMAB [Suspect]
     Active Substance: MEPOLIZUMAB
     Indication: Asthma
     Route: 042
     Dates: start: 20181002
  5. MEPOLIZUMAB [Suspect]
     Active Substance: MEPOLIZUMAB
     Indication: Asthma
     Route: 042
  6. PREDNISONE [Suspect]
     Active Substance: PREDNISONE
     Indication: Product used for unknown indication
     Route: 065
     Dates: start: 201805, end: 201808
  7. ALBUTEROL [Suspect]
     Active Substance: ALBUTEROL
     Indication: Product used for unknown indication
     Route: 055
  8. SPIRIVA [Suspect]
     Active Substance: TIOTROPIUM BROMIDE MONOHYDRATE
     Indication: Respiratory disorder
     Dosage: 2 PUFFS
     Route: 065
  9. SPIRIVA [Suspect]
     Active Substance: TIOTROPIUM BROMIDE MONOHYDRATE
     Indication: Respiratory disorder
     Route: 055
  10. VENTOLIN [Suspect]
     Active Substance: ALBUTEROL SULFATE
     Indication: Asthma
     Route: 065
  11. ROSUVASTATIN CALCIUM [Concomitant]
     Active Substance: ROSUVASTATIN CALCIUM
     Indication: Product used for unknown indication
     Route: 048
  12. ASPIRIN [Concomitant]
     Active Substance: ASPIRIN
     Indication: Product used for unknown indication
     Route: 048
  13. EZETIMIBE [Concomitant]
     Active Substance: EZETIMIBE
     Indication: Product used for unknown indication
     Route: 048
  14. PANTOPRAZOLE [Concomitant]
     Active Substance: PANTOPRAZOLE
     Indication: Product used for unknown indication
     Route: 048
  15. SALINE SINUS WASH [Concomitant]
     Indication: Product used for unknown indication
     Route: 065

REACTIONS (20)
  - Asthma [Recovering/Resolving]
  - Full blood count abnormal [Unknown]
  - Bronchial secretion retention [Recovered/Resolved]
  - Bronchiectasis [Unknown]
  - Cough [Recovering/Resolving]
  - Diarrhoea [Recovered/Resolved]
  - Dyspnoea [Not Recovered/Not Resolved]
  - Gastroenteritis viral [Recovered/Resolved]
  - Immunodeficiency [Unknown]
  - Lung opacity [Recovered/Resolved]
  - Nocturnal dyspnoea [Recovered/Resolved]
  - Obstructive airways disorder [Not Recovered/Not Resolved]
  - Productive cough [Recovering/Resolving]
  - Pulmonary mass [Recovered/Resolved]
  - Rhinitis [Unknown]
  - Sleep apnoea syndrome [Unknown]
  - Viral infection [Recovering/Resolving]
  - Wheezing [Recovering/Resolving]
  - Respiratory disorder [Unknown]
  - Therapeutic product effect incomplete [Unknown]

NARRATIVE: CASE EVENT DATE: 20181103
